FAERS Safety Report 13340945 (Version 1)
Quarter: 2017Q1

REPORT INFORMATION
  Report Type: Spontaneous
  Country: US (occurrence: US)
  Receive Date: 20170315
  Receipt Date: 20170315
  Transmission Date: 20170428
  Serious: No
  Sender: FDA-Public Use
  Company Number: None

PATIENT
  Age: 64 Year
  Sex: Female

DRUGS (1)
  1. HUMIRA [Suspect]
     Active Substance: ADALIMUMAB
     Indication: RHEUMATOID ARTHRITIS
     Route: 058
     Dates: start: 20140528

REACTIONS (5)
  - Arthralgia [None]
  - Atrial fibrillation [None]
  - Drug ineffective [None]
  - Lethargy [None]
  - Dyspnoea [None]

NARRATIVE: CASE EVENT DATE: 20170305
